FAERS Safety Report 4357594-4 (Version None)
Quarter: 2004Q2

REPORT INFORMATION
  Report Type: 
  Country: None (occurrence: None)
  Receive Date: 20040512
  Receipt Date: 20040512
  Transmission Date: 20050107
  Serious: Yes (Other)
  Sender: FDA-Public Use
  Company Number: None

PATIENT
  Age: 57 Year
  Sex: Female
  Weight: 72.5755 kg

DRUGS (3)
  1. REMERON [Suspect]
     Indication: DEPRESSION
     Dates: start: 20020810, end: 20040511
  2. REMERON [Suspect]
     Indication: INSOMNIA
     Dates: start: 20020810, end: 20040511
  3. KLONOPIN [Concomitant]

REACTIONS (14)
  - APATHY [None]
  - ARTHRALGIA [None]
  - BACK PAIN [None]
  - DEPRESSION [None]
  - FATIGUE [None]
  - FEELING ABNORMAL [None]
  - FEELING HOT [None]
  - HEADACHE [None]
  - HYPERHIDROSIS [None]
  - PAIN IN EXTREMITY [None]
  - SINUS DISORDER [None]
  - SOCIAL AVOIDANT BEHAVIOUR [None]
  - VISION BLURRED [None]
  - WEIGHT INCREASED [None]
